FAERS Safety Report 14991272 (Version 1)
Quarter: 2018Q2

REPORT INFORMATION
  Report Type: Spontaneous
  Country: US (occurrence: US)
  Receive Date: 20180608
  Receipt Date: 20180608
  Transmission Date: 20180711
  Serious: No
  Sender: FDA-Public Use
  Company Number: US-TEVA-2018-US-902726

PATIENT

DRUGS (1)
  1. PROAIR HFA [Suspect]
     Active Substance: ALBUTEROL SULFATE
     Route: 065

REACTIONS (3)
  - Drug ineffective [Unknown]
  - Dyspnoea [Unknown]
  - Product quality issue [Unknown]
